FAERS Safety Report 9390305 (Version 1)
Quarter: 2013Q3

REPORT INFORMATION
  Report Type: Report from Study
  Country: BR (occurrence: BR)
  Receive Date: 20130709
  Receipt Date: 20130709
  Transmission Date: 20140515
  Serious: Yes (Other)
  Sender: FDA-Public Use
  Company Number: BR-ROCHE-1180021

PATIENT
  Sex: Female
  Weight: 59 kg

DRUGS (5)
  1. ACTEMRA [Suspect]
     Indication: RHEUMATOID ARTHRITIS
     Route: 042
     Dates: start: 20111213
  2. ACTEMRA [Suspect]
     Route: 042
     Dates: start: 201201
  3. ACTEMRA [Suspect]
     Route: 042
     Dates: start: 201203
  4. ACTEMRA [Suspect]
     Route: 042
     Dates: start: 201206, end: 20120621
  5. PREDNISONE [Concomitant]
     Route: 065

REACTIONS (3)
  - Drug-induced liver injury [Unknown]
  - Alanine aminotransferase abnormal [Not Recovered/Not Resolved]
  - Aspartate aminotransferase abnormal [Not Recovered/Not Resolved]
